FAERS Safety Report 11898140 (Version 1)
Quarter: 2016Q1

REPORT INFORMATION
  Report Type: Spontaneous
  Country: US (occurrence: US)
  Receive Date: 20160108
  Receipt Date: 20160108
  Transmission Date: 20160526
  Serious: No
  Sender: FDA-Public Use
  Company Number: US-DRREDDYS-USA/USA/15/0051855

PATIENT
  Age: 49 Year
  Sex: Female

DRUGS (1)
  1. NICOTINE TRANSDERMAL SYSTEM STEP 1 [Suspect]
     Active Substance: NICOTINE
     Indication: SMOKING CESSATION THERAPY
     Dosage: 1 DF, UNK
     Route: 062
     Dates: end: 20141028

REACTIONS (4)
  - Wrong technique in product usage process [Unknown]
  - Incorrect drug administration duration [Unknown]
  - Nicotine dependence [Unknown]
  - Chest pain [Recovered/Resolved]
